FAERS Safety Report 16570221 (Version 3)
Quarter: 2020Q1

REPORT INFORMATION
  Report Type: Report from Study
  Country: US (occurrence: US)
  Receive Date: 20190715
  Receipt Date: 20200102
  Transmission Date: 20200409
  Serious: Yes (Death, Life-Threatening, Hospitalization, Other)
  Sender: FDA-Public Use
  Company Number: US-EMD SERONO-9103074

PATIENT
  Sex: Female

DRUGS (2)
  1. REBIF [Suspect]
     Active Substance: INTERFERON BETA-1A
     Indication: MULTIPLE SCLEROSIS
     Dates: start: 2006
  2. REBIF [Suspect]
     Active Substance: INTERFERON BETA-1A
     Route: 058
     Dates: start: 20090406

REACTIONS (17)
  - Hypersomnia [Unknown]
  - Peripheral swelling [Unknown]
  - Eye haematoma [Unknown]
  - Urinary tract infection [Unknown]
  - Facial bones fracture [Unknown]
  - Pulmonary oedema [Unknown]
  - Diabetic complication [Unknown]
  - Fall [Unknown]
  - Head injury [Unknown]
  - Loss of personal independence in daily activities [Unknown]
  - Renal artery stent placement [Unknown]
  - Decubitus ulcer [Unknown]
  - Anaemia [Unknown]
  - Internal haemorrhage [Fatal]
  - Haemorrhage [Unknown]
  - Skin injury [Unknown]
  - Face injury [Unknown]

NARRATIVE: CASE EVENT DATE: 2019
